FAERS Safety Report 9688687 (Version 1)
Quarter: 2013Q4

REPORT INFORMATION
  Report Type: Report from Study
  Country: US (occurrence: US)
  Receive Date: 20131114
  Receipt Date: 20131114
  Transmission Date: 20140711
  Serious: Yes (Hospitalization)
  Sender: FDA-Public Use
  Company Number: US-BAXTER-2013BAX043959

PATIENT
  Age: 72 Year
  Sex: 0

DRUGS (3)
  1. CYCLOPHOSPHAMIDE FOR INJECTION, USP [Suspect]
     Indication: PLASMA CELL MYELOMA
     Route: 042
     Dates: start: 20121112
  2. VINCRISTINE [Suspect]
     Indication: PLASMA CELL MYELOMA
     Route: 042
     Dates: start: 20121112
  3. DEXAMETHASONE [Suspect]
     Indication: PLASMA CELL MYELOMA
     Route: 048
     Dates: start: 20121112

REACTIONS (2)
  - Sinus polyp [Unknown]
  - Exophthalmos [Unknown]
